FAERS Safety Report 7586406-0 (Version None)
Quarter: 2011Q3

REPORT INFORMATION
  Report Type: 
  Country: None (occurrence: None)
  Receive Date: 20110701
  Receipt Date: 20110627
  Transmission Date: 20111222
  Serious: Yes (Hospitalization)
  Sender: FDA-Public Use
  Company Number: A0934072A

PATIENT
  Age: 81 Year
  Sex: Female

DRUGS (3)
  1. VENTOLIN HFA [Suspect]
     Dosage: 90MCG UNKNOWN
     Route: 055
     Dates: start: 20100929
  2. FLONASE [Suspect]
     Dosage: 50MCG UNKNOWN
     Route: 045
     Dates: start: 20100929
  3. ADVAIR DISKUS 100/50 [Suspect]
     Route: 055
     Dates: start: 20100929

REACTIONS (1)
  - PNEUMONIA [None]
